FAERS Safety Report 7104169-X (Version None)
Quarter: 2010Q4

REPORT INFORMATION
  Report Type: 
  Country: None (occurrence: None)
  Receive Date: 20101115
  Receipt Date: 20101112
  Transmission Date: 20110411
  Serious: Yes (Death, Hospitalization, Other)
  Sender: FDA-Public Use
  Company Number: BR-ABBOTT-10P-020-0683696-00

PATIENT
  Sex: Female

DRUGS (1)
  1. HUMIRA [Suspect]
     Indication: RHEUMATOID ARTHRITIS

REACTIONS (7)
  - ASTHENIA [None]
  - COLOSTOMY [None]
  - GASTRIC ULCER [None]
  - INFECTION [None]
  - MALABSORPTION [None]
  - MALNUTRITION [None]
  - PNEUMOTHORAX TRAUMATIC [None]
